FAERS Safety Report 4882333-8 (Version None)
Quarter: 2005Q4

REPORT INFORMATION
  Report Type: 
  Country: None (occurrence: None)
  Receive Date: 20051223
  Receipt Date: 20050907
  Transmission Date: 20060501
  Serious: No
  Sender: FDA-Public Use
  Company Number: 05P-163-0310447-00

PATIENT
  Age: 78 Year
  Sex: Female
  Weight: 56.6996 kg

DRUGS (12)
  1. HUMIRA [Suspect]
     Indication: RHEUMATOID ARTHRITIS
     Dosage: 40 MG, 1 IN 2 WK, SUBCUTANEOUS
     Route: 058
     Dates: start: 20050601, end: 20050824
  2. PENICILLIN [Suspect]
     Indication: LOCALISED INFECTION
     Dosage: 500 MG, 2 IN 1 D, PER ORAL
     Route: 048
     Dates: start: 20050823, end: 20050824
  3. PREDNISONE [Concomitant]
  4. WARFARIN [Concomitant]
  5. TELMISARTAN [Concomitant]
  6. FOLIC ACID [Concomitant]
  7. DILTIAZEM HYDROCHLORIDE [Concomitant]
  8. FUROSEMIDE [Concomitant]
  9. POTASSIUM [Concomitant]
  10. ALENDRONATE SODIUM [Concomitant]
  11. CALCIUM WITH VITAMIN D [Concomitant]
  12. ZOCOR [Concomitant]

REACTIONS (2)
  - LOCALISED INFECTION [None]
  - RASH [None]
